FAERS Safety Report 8963793 (Version 2)
Quarter: 2012Q4

REPORT INFORMATION
  Report Type: 
  Country: US (occurrence: US)
  Receive Date: 20121214
  Receipt Date: 20121221
  Transmission Date: 20130627
  Serious: Yes (Hospitalization, Disabling)
  Sender: FDA-Public Use
  Company Number: US-ACTELION-A-NJ2012-76180

PATIENT
  Age: 30 Year
  Sex: Female

DRUGS (2)
  1. VELETRI [Suspect]
     Indication: PULMONARY ARTERIAL HYPERTENSION
     Dosage: 101.7 ng/kg, per min
     Route: 041
     Dates: start: 20110201
  2. COUMADIN [Concomitant]

REACTIONS (1)
  - Schizophrenia, paranoid type [Recovering/Resolving]
